FAERS Safety Report 8558927-5 (Version None)
Quarter: 2012Q3

REPORT INFORMATION
  Report Type: 
  Country: None (occurrence: None)
  Receive Date: 20120802
  Receipt Date: 20120723
  Transmission Date: 20120928
  Serious: Yes (Other)
  Sender: FDA-Public Use
  Company Number: US-009507513-1207USA009949

PATIENT

DRUGS (3)
  1. ATORVASTATIN CALCIUM [Suspect]
  2. ZOCOR [Suspect]
     Route: 048
  3. PRAVASTATIN SODIUM [Suspect]

REACTIONS (11)
  - PHARYNGEAL OEDEMA [None]
  - NAUSEA [None]
  - ERYTHEMA [None]
  - MALAISE [None]
  - RASH [None]
  - SUICIDAL IDEATION [None]
  - CONSTIPATION [None]
  - FEELING ABNORMAL [None]
  - DYSPEPSIA [None]
  - PAIN [None]
  - PRURITUS GENERALISED [None]
